FAERS Safety Report 5688228-4 (Version None)
Quarter: 2008Q1

REPORT INFORMATION
  Report Type: 
  Country: None (occurrence: None)
  Receive Date: 20080327
  Receipt Date: 20080324
  Transmission Date: 20080703
  Serious: Yes (Hospitalization)
  Sender: FDA-Public Use
  Company Number: TCI2007A06607

PATIENT
  Age: 77 Year
  Sex: Male
  Weight: 69 kg

DRUGS (5)
  1. LEUPROLIDE ACETATE [Suspect]
     Indication: PROSTATE CANCER STAGE II
     Dosage: 11.25 MG (11.25 MG,1 IN 12 WK)
     Route: 058
     Dates: start: 20060824
  2. CASODEX [Concomitant]
  3. DIOVAN [Concomitant]
  4. NIVADIL              (NILVADIPINE) (TABLETS) [Concomitant]
  5. TICLOPIDINE HYDROCHLORIDE [Concomitant]

REACTIONS (3)
  - LARGE INTESTINE PERFORATION [None]
  - POLLAKIURIA [None]
  - POST PROCEDURAL COMPLICATION [None]
